FAERS Safety Report 6279281-8 (Version None)
Quarter: 2009Q3

REPORT INFORMATION
  Report Type: 
  Country: None (occurrence: None)
  Receive Date: 20090723
  Receipt Date: 20090106
  Transmission Date: 20100115
  Serious: No
  Sender: FDA-Public Use
  Company Number: US-AMGEN-KDL314744

PATIENT
  Sex: Male
  Weight: 86.3 kg

DRUGS (2)
  1. PROCRIT [Suspect]
     Indication: RENAL FAILURE CHRONIC
     Route: 058
     Dates: start: 20050101
  2. IMMUNOSUPPRESSANTS [Concomitant]

REACTIONS (2)
  - BLOOD COUNT ABNORMAL [None]
  - HAEMORRHAGE [None]
